FAERS Safety Report 6060410-6 (Version None)
Quarter: 2009Q1

REPORT INFORMATION
  Report Type: 
  Country: None (occurrence: None)
  Receive Date: 20090129
  Receipt Date: 20090129
  Transmission Date: 20090719
  Serious: Yes (Other)
  Sender: FDA-Public Use
  Company Number: None

PATIENT
  Age: 47 Year
  Sex: Female
  Weight: 68.0396 kg

DRUGS (2)
  1. CEPHALEXIN [Suspect]
     Indication: CYSTITIS
     Dosage: 1 CAPSULE 3 TIMES A DAY PO
     Route: 048
     Dates: start: 20080404, end: 20080409
  2. CEPHALEXIN [Suspect]
     Indication: KIDNEY INFECTION
     Dosage: 1 CAPSULE 3 TIMES A DAY PO
     Route: 048
     Dates: start: 20080404, end: 20080409

REACTIONS (2)
  - ARTHRALGIA [None]
  - PAIN IN EXTREMITY [None]
